FAERS Safety Report 7305906-1 (Version None)
Quarter: 2011Q1

REPORT INFORMATION
  Report Type: 
  Country: None (occurrence: None)
  Receive Date: 20110209
  Receipt Date: 20110128
  Transmission Date: 20110831
  Serious: Yes (Hospitalization)
  Sender: FDA-Public Use
  Company Number: 2011SP004352

PATIENT
  Age: 50 Year
  Sex: Female

DRUGS (2)
  1. FLU SHOT [Suspect]
     Indication: PRODUCT USED FOR UNKNOWN INDICATION
     Dosage: DOSE #0 (IN SERIES)
     Dates: start: 20110101
  2. DULERA TABLET [Suspect]
     Indication: ASTHMA
     Dosage: INH
     Route: 055

REACTIONS (1)
  - GUILLAIN-BARRE SYNDROME [None]
